FAERS Safety Report 10315001 (Version 1)
Quarter: 2014Q3

REPORT INFORMATION
  Report Type: Spontaneous
  Country: US (occurrence: US)
  Receive Date: 20140718
  Receipt Date: 20140718
  Transmission Date: 20150326
  Serious: No
  Sender: FDA-Public Use
  Company Number: US-ASTRAZENECA-2014SE51994

PATIENT
  Age: 39 Year
  Sex: Female
  Weight: 72.6 kg

DRUGS (4)
  1. LEVOTHYROXINE [Concomitant]
     Active Substance: LEVOTHYROXINE
     Indication: HYPERTHYROIDISM
     Dosage: 88 MCG
  2. CLONAZEPAM. [Concomitant]
     Active Substance: CLONAZEPAM
     Indication: ANXIETY
  3. PROZAC [Concomitant]
     Active Substance: FLUOXETINE HYDROCHLORIDE
  4. NEXIUM 24HR [Suspect]
     Active Substance: ESOMEPRAZOLE MAGNESIUM
     Indication: GASTRITIS
     Route: 048
     Dates: start: 20140710, end: 20140711

REACTIONS (14)
  - Drug intolerance [Unknown]
  - Insomnia [Unknown]
  - Fatigue [Unknown]
  - Abdominal distension [Unknown]
  - Malaise [Unknown]
  - Constipation [Unknown]
  - Dry mouth [Unknown]
  - Nervousness [Unknown]
  - Abdominal pain upper [Unknown]
  - Gastritis [Unknown]
  - Feeling abnormal [Unknown]
  - Confusional state [Unknown]
  - Dysgeusia [Unknown]
  - Intentional product misuse [Recovered/Resolved]

NARRATIVE: CASE EVENT DATE: 20140710
